FAERS Safety Report 20496797 (Version 1)
Quarter: 2022Q1

REPORT INFORMATION
  Report Type: Spontaneous
  Country: CN (occurrence: CN)
  Receive Date: 20220221
  Receipt Date: 20220221
  Transmission Date: 20220423
  Serious: Yes (Hospitalization, Other)
  Sender: FDA-Public Use
  Company Number: CN-BAYER-2022A025075

PATIENT
  Age: 71 Year
  Sex: Female
  Weight: 43 kg

DRUGS (3)
  1. GLUCOBAY [Interacting]
     Active Substance: ACARBOSE
     Indication: Diabetes mellitus
     Dosage: 50 MG, TID
     Route: 048
     Dates: start: 20220205, end: 20220210
  2. LANTUS [Interacting]
     Active Substance: INSULIN GLARGINE
     Indication: Diabetes mellitus
     Dosage: 10 U, QD
     Route: 058
     Dates: start: 20220205, end: 20220210
  3. METFORMIN [Interacting]
     Active Substance: METFORMIN HYDROCHLORIDE
     Indication: Diabetes mellitus
     Dosage: 0.25 G, TID
     Route: 048
     Dates: start: 20220205, end: 20220210

REACTIONS (3)
  - Hypoglycaemia [Recovered/Resolved]
  - Decreased appetite [None]
  - Vomiting [None]

NARRATIVE: CASE EVENT DATE: 20220210
